FAERS Safety Report 4591735-9 (Version None)
Quarter: 2005Q1

REPORT INFORMATION
  Report Type: 
  Country: None (occurrence: None)
  Receive Date: 20050218
  Receipt Date: 20050211
  Transmission Date: 20050727
  Serious: Yes (Hospitalization, Other)
  Sender: FDA-Public Use
  Company Number: 2004RL000138

PATIENT
  Age: 63 Year
  Sex: Male

DRUGS (5)
  1. RYTHMOL [Suspect]
     Indication: ATRIAL FIBRILLATION
     Dosage: 150 MG; TID; PO
     Route: 048
     Dates: start: 20000101, end: 20041220
  2. PREVACID [Concomitant]
  3. HYDROCHLOROTHIAZIDE [Concomitant]
  4. VALIUM [Concomitant]
  5. IBUPROFEN [Concomitant]

REACTIONS (18)
  - ABNORMAL SENSATION IN EYE [None]
  - ARTHRALGIA [None]
  - ATRIAL FIBRILLATION [None]
  - CARPAL TUNNEL SYNDROME [None]
  - CONSTIPATION [None]
  - DIZZINESS [None]
  - DRY EYE [None]
  - DRY MOUTH [None]
  - DYSGEUSIA [None]
  - EYE IRRITATION [None]
  - HEADACHE [None]
  - NAUSEA [None]
  - OCULAR HYPERAEMIA [None]
  - PAIN [None]
  - SALIVARY GLAND DISORDER [None]
  - SINUS DISORDER [None]
  - STOMACH DISCOMFORT [None]
  - TREATMENT NONCOMPLIANCE [None]
